FAERS Safety Report 7743784-7 (Version None)
Quarter: 2011Q3

REPORT INFORMATION
  Report Type: 
  Country: None (occurrence: None)
  Receive Date: 20110912
  Receipt Date: 20110902
  Transmission Date: 20111222
  Serious: Yes (Death)
  Sender: FDA-Public Use
  Company Number: US-GLAXOSMITHKLINE-A0812498A

PATIENT
  Age: 67 Year
  Sex: Male
  Weight: 122 kg

DRUGS (4)
  1. AVANDIA [Suspect]
     Indication: TYPE 2 DIABETES MELLITUS
     Dosage: 8MG TWICE PER DAY
     Route: 048
     Dates: start: 20020401, end: 20080101
  2. AVANDAMET [Suspect]
     Indication: TYPE 2 DIABETES MELLITUS
     Route: 048
     Dates: start: 20080512, end: 20080101
  3. ZOCOR [Concomitant]
  4. GLYBURIDE [Concomitant]

REACTIONS (4)
  - VENTRICULAR TACHYCARDIA [None]
  - MYOCARDIAL INFARCTION [None]
  - ARTERIOSCLEROSIS CORONARY ARTERY [None]
  - DIABETES MELLITUS [None]
